FAERS Safety Report 8402224 (Version 4)
Quarter: 2013Q2

REPORT INFORMATION
  Report Type: Spontaneous
  Country: US (occurrence: US)
  Receive Date: 20120213
  Receipt Date: 20130607
  Transmission Date: 20140414
  Serious: Yes (Hospitalization)
  Sender: FDA-Public Use
  Company Number: US-AMGEN-USASP2012008066

PATIENT
  Age: 30 Year
  Sex: Male
  Weight: 63.04 kg

DRUGS (6)
  1. CINACALCET HCL [Suspect]
     Indication: HYPERPARATHYROIDISM SECONDARY
     Dosage: 60 MG, QD
     Route: 048
     Dates: start: 20061019, end: 201101
  2. CINACALCET HCL [Suspect]
     Dosage: 30 UNK, BID
     Dates: start: 20100927
  3. CINACALCET HCL [Suspect]
     Dosage: 30 UNK, BID
     Dates: start: 20101123, end: 20110201
  4. TACROLIMUS [Concomitant]
  5. MYCOPHENOLATE MOFETIL [Concomitant]
  6. PREDNISONE [Concomitant]

REACTIONS (9)
  - Hypercalciuria [Recovered/Resolved]
  - Nephrolithiasis [Recovered/Resolved]
  - Hyperparathyroidism [Recovered/Resolved]
  - Pyrexia [Unknown]
  - Inguinal hernia [Recovered/Resolved]
  - Groin pain [Recovered/Resolved]
  - Lethargy [Unknown]
  - Abdominal pain [Recovered/Resolved]
  - Constipation [Recovered/Resolved]
